FAERS Safety Report 17815655 (Version 1)
Quarter: 2020Q2

REPORT INFORMATION
  Report Type: Spontaneous
  Country: US (occurrence: US)
  Receive Date: 20200522
  Receipt Date: 20200522
  Transmission Date: 20200714
  Serious: No
  Sender: FDA-Public Use
  Company Number: US-ALVOGEN-2020-ALVOGEN-108386

PATIENT
  Age: 42 Year
  Sex: Male

DRUGS (1)
  1. GRALISE [Suspect]
     Active Substance: GABAPENTIN
     Indication: MIGRAINE
     Dosage: 600 MG, ONE TABLET BY MOUTH AT BEDTIME
     Route: 048

REACTIONS (2)
  - Product use in unapproved indication [Unknown]
  - Adverse event [Unknown]
